APPROVED DRUG PRODUCT: CEFOXITIN
Active Ingredient: CEFOXITIN SODIUM
Strength: EQ 10GM BASE/VIAL
Dosage Form/Route: INJECTABLE;INJECTION
Application: A065312 | Product #001
Applicant: HOSPIRA INC
Approved: Feb 13, 2006 | RLD: No | RS: No | Type: DISCN